FAERS Safety Report 20142159 (Version 1)
Quarter: 2021Q4

REPORT INFORMATION
  Report Type: Spontaneous
  Country: FR (occurrence: FR)
  Receive Date: 20211202
  Receipt Date: 20211202
  Transmission Date: 20220304
  Serious: Yes (Other)
  Sender: FDA-Public Use
  Company Number: FR-ROCHE-2955563

PATIENT
  Age: 53 Year
  Sex: Male

DRUGS (5)
  1. BEVACIZUMAB [Suspect]
     Active Substance: BEVACIZUMAB
     Indication: Lung adenocarcinoma
     Dosage: UNK
     Dates: start: 20210921
  2. PEMETREXED [Suspect]
     Active Substance: PEMETREXED
     Indication: Lung adenocarcinoma
     Dosage: UNK
     Dates: start: 20210226
  3. CARBOPLATIN [Suspect]
     Active Substance: CARBOPLATIN
     Indication: Lung adenocarcinoma
     Dosage: UNK
     Dates: start: 20210226
  4. ENTRECTINIB [Suspect]
     Active Substance: ENTRECTINIB
     Indication: Neoplasm malignant
     Dosage: UNK
     Dates: start: 20190218, end: 20210111
  5. LORLATINIB [Concomitant]
     Active Substance: LORLATINIB
     Dosage: UNK

REACTIONS (5)
  - Urinary retention [Unknown]
  - Constipation [Unknown]
  - Faecaloma [Unknown]
  - Carpal tunnel syndrome [Unknown]
  - Dysgeusia [Not Recovered/Not Resolved]
